FAERS Safety Report 6801265-9 (Version None)
Quarter: 2010Q2

REPORT INFORMATION
  Report Type: 
  Country: None (occurrence: None)
  Receive Date: 20100629
  Receipt Date: 20100315
  Transmission Date: 20101027
  Serious: No
  Sender: FDA-Public Use
  Company Number: A0851039A

PATIENT
  Sex: Male

DRUGS (2)
  1. LAMICTAL XR [Suspect]
     Indication: DRUG USE FOR UNKNOWN INDICATION
     Route: 065
  2. KEPPRA [Concomitant]
     Dosage: 1000MG TWICE PER DAY
     Route: 065

REACTIONS (2)
  - ERYTHEMA [None]
  - SKIN EXFOLIATION [None]
